FAERS Safety Report 4353084-3 (Version None)
Quarter: 2004Q2

REPORT INFORMATION
  Report Type: 
  Country: None (occurrence: None)
  Receive Date: 20040429
  Receipt Date: 20040419
  Transmission Date: 20050107
  Serious: Yes (Death, Hospitalization, Other)
  Sender: FDA-Public Use
  Company Number: 2004198421AT

PATIENT
  Age: 62 Year
  Sex: Female

DRUGS (7)
  1. CAMPTOSAR [Suspect]
     Indication: COLORECTAL CANCER METASTATIC
     Dosage: 180 MG/M2, CYCLE 2, IV
     Route: 042
     Dates: start: 20031202, end: 20040116
  2. CETUXIMAB () [Suspect]
     Indication: COLORECTAL CANCER METASTATIC
     Dosage: 250 MG/M2, CYCLE 4, IV DRIP
     Route: 041
     Dates: start: 20031202, end: 20040116
  3. ANASTROZOLE (ANASTROZOLE) [Suspect]
     Indication: COLORECTAL CANCER METASTATIC
  4. CEFPODOXIME PROXETIL [Concomitant]
  5. INSULIN HUMAN INJECTION, ISOPHANE (INSULIN HUMAN INJECTION, ISOPHANE) [Concomitant]
  6. NOZINAN [Concomitant]
  7. HYDROMORPHONE HCL [Concomitant]

REACTIONS (24)
  - ACNE [None]
  - ANAEMIA [None]
  - AZOTAEMIA [None]
  - COLORECTAL CANCER METASTATIC [None]
  - DERMATITIS [None]
  - DIARRHOEA [None]
  - DIZZINESS [None]
  - DRUG TOXICITY [None]
  - EXCORIATION [None]
  - FATIGUE [None]
  - FLATULENCE [None]
  - GASTROINTESTINAL HAEMORRHAGE [None]
  - GENERAL PHYSICAL HEALTH DETERIORATION [None]
  - HAEMATOCHEZIA [None]
  - INTESTINAL HYPOMOTILITY [None]
  - LEUKOPENIA [None]
  - MALIGNANT NEOPLASM PROGRESSION [None]
  - MULTI-ORGAN FAILURE [None]
  - PANCYTOPENIA [None]
  - PARAESTHESIA [None]
  - PETECHIAE [None]
  - PORTAL HYPERTENSION [None]
  - RENAL IMPAIRMENT [None]
  - SKIN NECROSIS [None]
